APPROVED DRUG PRODUCT: NETSPOT
Active Ingredient: GALLIUM DOTATATE GA-68
Strength: 2.1-5.5mCi/ML
Dosage Form/Route: POWDER;INTRAVENOUS
Application: N208547 | Product #001
Applicant: ADVANCED ACCELERATOR APPLICATIONS USA INC
Approved: Jun 1, 2016 | RLD: Yes | RS: Yes | Type: RX

PATENTS:
Patent 9375498 | Expires: Aug 10, 2032